FAERS Safety Report 24701316 (Version 1)
Quarter: 2024Q4

REPORT INFORMATION
  Report Type: Spontaneous
  Country: CN (occurrence: CN)
  Receive Date: 20241205
  Receipt Date: 20241205
  Transmission Date: 20250114
  Serious: Yes (Life-Threatening, Other)
  Sender: PFIZER
  Company Number: CN-PFIZER INC-PV202400156527

PATIENT
  Age: 19 Month
  Sex: Male
  Weight: 11.5 kg

DRUGS (3)
  1. CYTARABINE [Suspect]
     Active Substance: CYTARABINE
     Indication: Acute lymphocytic leukaemia (in remission)
     Dosage: 37.7 MG, 1X/DAY
     Route: 041
     Dates: start: 20241119, end: 20241122
  2. CYCLOPHOSPHAMIDE [Suspect]
     Active Substance: CYCLOPHOSPHAMIDE
     Indication: Acute lymphocytic leukaemia (in remission)
     Dosage: 500 MG, 1X/DAY
     Route: 041
     Dates: start: 20241117, end: 20241117
  3. PEGASPARGASE [Suspect]
     Active Substance: PEGASPARGASE
     Indication: Acute lymphocytic leukaemia (in remission)
     Dosage: 1257 IU, 1X/DAY
     Route: 030
     Dates: start: 20241118, end: 20241118

REACTIONS (1)
  - Myelosuppression [Recovering/Resolving]

NARRATIVE: CASE EVENT DATE: 20241124
